FAERS Safety Report 14256925 (Version 9)
Quarter: 2018Q3

REPORT INFORMATION
  Report Type: Spontaneous
  Country: IT (occurrence: IT)
  Receive Date: 20171206
  Receipt Date: 20180723
  Transmission Date: 20181010
  Serious: Yes (Hospitalization, Other)
  Sender: FDA-Public Use
  Company Number: IT-BAUSCH-BL-2017-032467

PATIENT
  Age: 16 Year
  Sex: Female

DRUGS (12)
  1. VENLAFAXINE [Suspect]
     Active Substance: VENLAFAXINE HYDROCHLORIDE
     Indication: INTENTIONAL SELF-INJURY
     Dosage: ONCE/SINGLE (TOTAL) ; 150 MG, TOTAL ; IN TOTAL
     Route: 048
     Dates: start: 20170905, end: 20170905
  2. ZOLPIDEM [Interacting]
     Active Substance: ZOLPIDEM\ZOLPIDEM TARTRATE
     Indication: PRODUCT USED FOR UNKNOWN INDICATION
     Route: 065
     Dates: start: 20170905, end: 20170905
  3. STILNOX [Interacting]
     Active Substance: ZOLPIDEM TARTRATE
     Indication: PRODUCT USED FOR UNKNOWN INDICATION
     Route: 065
     Dates: start: 20170905, end: 20170905
  4. DEPAKIN [Concomitant]
     Active Substance: VALPROATE SODIUM
     Indication: ATTENTION DEFICIT/HYPERACTIVITY DISORDER
  5. ALCOHOL. [Interacting]
     Active Substance: ALCOHOL
     Indication: PRODUCT USED FOR UNKNOWN INDICATION
     Dosage: 1 OT, IN TOTAL
     Route: 048
     Dates: start: 20170905, end: 20170905
  6. RISPERDAL [Interacting]
     Active Substance: RISPERIDONE
     Indication: INTENTIONAL SELF-INJURY
     Route: 048
  7. RISPERDAL [Interacting]
     Active Substance: RISPERIDONE
     Indication: ATTENTION DEFICIT/HYPERACTIVITY DISORDER
  8. DEPAKIN [Concomitant]
     Active Substance: VALPROATE SODIUM
     Indication: INTELLECTUAL DISABILITY
     Route: 048
  9. TRIAZOLAM. [Interacting]
     Active Substance: TRIAZOLAM
     Indication: INTENTIONAL SELF-INJURY
     Dosage: ONCE/SINGLE (TOTAL) ; 2.5 MG, TOTAL ; IN TOTAL
     Route: 048
     Dates: start: 20170905, end: 20170905
  10. LORAZEPAM. [Interacting]
     Active Substance: LORAZEPAM
     Indication: INTENTIONAL SELF-INJURY
     Dosage: ONCE/SINGLE ; 75 MG, TOTAL ; IN TOTAL
     Route: 048
     Dates: start: 20170905, end: 20170905
  11. RISPERDAL [Interacting]
     Active Substance: RISPERIDONE
     Indication: INTELLECTUAL DISABILITY
     Dosage: ONCE/SINGLE (TOTAL) ; IN TOTAL
     Route: 048
     Dates: start: 20170905, end: 20170905
  12. LORMETAZEPAM [Interacting]
     Active Substance: LORMETAZEPAM
     Indication: INTENTIONAL SELF-INJURY
     Dosage: ONCE/SINGLE (TOTAL) ; 10 MG, TOTAL ; IN TOTAL
     Route: 048
     Dates: start: 20170905, end: 20170905

REACTIONS (13)
  - Alcohol interaction [Unknown]
  - Intellectual disability [Unknown]
  - Contraindicated product administered [Recovered/Resolved]
  - Intentional self-injury [Recovered/Resolved]
  - Sopor [Unknown]
  - Attention deficit/hyperactivity disorder [Unknown]
  - Drug interaction [Unknown]
  - Intentional product misuse [Recovered/Resolved]
  - Concomitant disease aggravated [Unknown]
  - Drug abuse [Unknown]
  - Aphasia [Unknown]
  - Loss of consciousness [Unknown]
  - Overdose [Recovered/Resolved]

NARRATIVE: CASE EVENT DATE: 20170905
